FAERS Safety Report 13880138 (Version 1)
Quarter: 2017Q3

REPORT INFORMATION
  Report Type: Spontaneous
  Country: US (occurrence: US)
  Receive Date: 20170816
  Receipt Date: 20170816
  Transmission Date: 20171127
  Serious: Yes (Hospitalization)
  Sender: FDA-Public Use
  Company Number: None

PATIENT
  Age: 55 Year
  Sex: Male
  Weight: 71 kg

DRUGS (1)
  1. DOCUSATE [Suspect]
     Active Substance: DOCUSATE
     Indication: CONSTIPATION
     Dosage: AT BEDTIME
     Route: 048
     Dates: start: 20170601, end: 20170621

REACTIONS (3)
  - Burkholderia test positive [None]
  - Poor quality drug administered [None]
  - Product contamination microbial [None]

NARRATIVE: CASE EVENT DATE: 20170613
